FAERS Safety Report 8531134-8 (Version None)
Quarter: 2012Q3

REPORT INFORMATION
  Report Type: 
  Country: None (occurrence: None)
  Receive Date: 20120723
  Receipt Date: 20120712
  Transmission Date: 20120928
  Serious: Yes (Other)
  Sender: FDA-Public Use
  Company Number: US-BAYER-2012-071521

PATIENT
  Age: 35 Year
  Sex: Female

DRUGS (11)
  1. DEPAKOTE [Concomitant]
     Dosage: UNK
     Route: 048
     Dates: start: 20110203
  2. YAZ [Suspect]
     Indication: CONTRACEPTION
  3. AVIANE-28 [Concomitant]
  4. ARNICA [Concomitant]
  5. ATIVAN [Concomitant]
     Dosage: UNK
     Route: 048
     Dates: start: 20110204
  6. METRONIDAZOLE [Concomitant]
     Dosage: 0.75 %, UNK
     Route: 061
  7. CLINDAMYCIN [Concomitant]
     Route: 067
  8. DROSPIRENONE AND ETHINYL ESTRADIOL [Suspect]
  9. ZETIA [Concomitant]
     Dosage: UNK
     Route: 048
     Dates: start: 20110203
  10. LITHIUM CARBONATE [Concomitant]
     Dosage: UNK
     Route: 048
     Dates: start: 20110203
  11. TYLENOL [Concomitant]
     Dosage: UNK
     Route: 048
     Dates: start: 20110203

REACTIONS (1)
  - DEEP VEIN THROMBOSIS [None]
